FAERS Safety Report 9961354 (Version 2)
Quarter: 2014Q1

REPORT INFORMATION
  Report Type: Report from Study
  Country: JP (occurrence: JP)
  Receive Date: 20140305
  Receipt Date: 20140325
  Transmission Date: 20141002
  Serious: Yes (Hospitalization)
  Sender: FDA-Public Use
  Company Number: JP-JNJFOC-20140300670

PATIENT
  Age: 26 Year
  Sex: Female

DRUGS (8)
  1. STELARA [Suspect]
     Indication: PSORIASIS
     Route: 058
     Dates: start: 20130723
  2. ALLEGRA [Concomitant]
     Indication: PSORIASIS
     Route: 048
     Dates: end: 20140224
  3. NEOMALLERMIN TR [Concomitant]
     Indication: ATOPY
     Route: 048
     Dates: end: 20140224
  4. IPD [Concomitant]
     Indication: DERMATITIS ATOPIC
     Route: 061
     Dates: end: 20140224
  5. MYSER [Concomitant]
     Indication: PSORIASIS
     Route: 061
     Dates: end: 20140224
  6. PROPETO [Concomitant]
     Indication: PSORIASIS
     Route: 047
  7. DERMOVATE [Concomitant]
     Indication: PSORIASIS
     Route: 061
     Dates: end: 20140224
  8. LOCOID [Concomitant]
     Indication: PSORIASIS
     Route: 061
     Dates: end: 20140224

REACTIONS (1)
  - Herpes zoster [Recovered/Resolved]
